FAERS Safety Report 9596540 (Version 3)
Quarter: 2014Q1

REPORT INFORMATION
  Report Type: Spontaneous
  Country: JP (occurrence: JP)
  Receive Date: 20131004
  Receipt Date: 20140124
  Transmission Date: 20141002
  Serious: Yes (Hospitalization, Other)
  Sender: FDA-Public Use
  Company Number: JP-EISAI INC-E3810-06704-SPO-JP

PATIENT
  Age: 34 Year
  Sex: Male

DRUGS (10)
  1. PARIET (RABEPRAZOLE) [Suspect]
     Indication: HELICOBACTER INFECTION
     Route: 048
     Dates: start: 20130830, end: 20130917
  2. PARIET (RABEPRAZOLE) [Interacting]
     Indication: GASTRIC ULCER
     Dates: start: 20130823, end: 20130829
  3. FLAGYL [Suspect]
     Indication: HELICOBACTER INFECTION
     Route: 048
     Dates: start: 20130823, end: 20130829
  4. SAWACILLIN [Suspect]
     Indication: HELICOBACTER INFECTION
     Route: 048
     Dates: start: 20130823, end: 20130829
  5. GASMOTIN [Suspect]
     Indication: GASTRITIS
     Route: 048
     Dates: start: 20130830, end: 20130917
  6. GASMOTIN [Suspect]
     Indication: GASTRIC ULCER
  7. DOGMATYL [Suspect]
     Indication: GASTRITIS
     Dates: start: 20130830, end: 20130917
  8. DOGMATYL [Suspect]
     Indication: GASTRIC ULCER
  9. MUCOSTA [Suspect]
     Indication: GASTRITIS
     Route: 048
     Dates: start: 20130830, end: 20130917
  10. MUCOSTA [Suspect]
     Indication: GASTRIC ULCER

REACTIONS (4)
  - Palpitations [Unknown]
  - Chest discomfort [Unknown]
  - Hepatic function abnormal [Recovering/Resolving]
  - Jaundice [Unknown]
